FAERS Safety Report 5889681-3 (Version None)
Quarter: 2008Q3

REPORT INFORMATION
  Report Type: 
  Country: None (occurrence: None)
  Receive Date: 20080919
  Receipt Date: 20080909
  Transmission Date: 20090109
  Serious: Yes (Hospitalization)
  Sender: FDA-Public Use
  Company Number: US-JNJFOC-20070905082

PATIENT
  Sex: Female
  Weight: 58.97 kg

DRUGS (5)
  1. DURAGESIC-100 [Suspect]
     Indication: BACK PAIN
     Route: 062
  2. HYDROCODONE BITARTRATE [Concomitant]
     Indication: PAIN
     Dosage: AS NEEDED
     Route: 048
  3. VALIUM [Concomitant]
     Indication: ANXIETY
     Route: 048
  4. BENADRYL [Concomitant]
     Indication: SEASONAL ALLERGY
     Route: 048
  5. SOMA [Concomitant]
     Indication: MUSCLE SPASMS
     Route: 048

REACTIONS (16)
  - APPLICATION SITE ERYTHEMA [None]
  - BIPOLAR DISORDER [None]
  - DEPRESSION [None]
  - DRUG ADMINISTERED AT INAPPROPRIATE SITE [None]
  - DRUG DEPENDENCE [None]
  - DRUG TOXICITY [None]
  - DRUG WITHDRAWAL SYNDROME [None]
  - FEELING ABNORMAL [None]
  - IMPAIRED DRIVING ABILITY [None]
  - INAPPROPRIATE SCHEDULE OF DRUG ADMINISTRATION [None]
  - PHARMACEUTICAL PRODUCT COMPLAINT [None]
  - PHOTOPHOBIA [None]
  - TREATMENT NONCOMPLIANCE [None]
  - VAGINAL HAEMORRHAGE [None]
  - VOMITING [None]
  - WRONG TECHNIQUE IN DRUG USAGE PROCESS [None]
